FAERS Safety Report 9983002 (Version 1)
Quarter: 2014Q1

REPORT INFORMATION
  Report Type: Spontaneous
  Country: US (occurrence: None)
  Receive Date: 20140131
  Receipt Date: 20140131
  Transmission Date: 20141002
  Serious: Yes (Other)
  Sender: FDA-Public Use
  Company Number: 081991

PATIENT
  Sex: Male

DRUGS (2)
  1. KEPPRA [Suspect]
     Indication: CONVULSION
     Dosage: TWO 1000MG TABLET A DAY)
  2. LACOSAMIDE [Suspect]
     Indication: CONVULSION

REACTIONS (2)
  - Partial seizures [None]
  - Fatigue [None]
